FAERS Safety Report 16676430 (Version 1)
Quarter: 2019Q3

REPORT INFORMATION
  Report Type: Spontaneous
  Country: US (occurrence: US)
  Receive Date: 20190807
  Receipt Date: 20190807
  Transmission Date: 20191004
  Serious: No
  Sender: FDA-Public Use
  Company Number: US-ELI_LILLY_AND_COMPANY-US201908000887

PATIENT
  Sex: Male

DRUGS (2)
  1. HUMALOG KWIKPEN [Suspect]
     Active Substance: INSULIN LISPRO
     Indication: DIABETES MELLITUS INADEQUATE CONTROL
     Dosage: 10 U, UNKNOWN
     Route: 065
  2. HUMALOG [Suspect]
     Active Substance: INSULIN LISPRO
     Indication: DIABETES MELLITUS INADEQUATE CONTROL
     Dosage: 20 U, UNKNOWN
     Route: 058

REACTIONS (3)
  - Blood glucose abnormal [Recovered/Resolved]
  - Wrong product administered [Unknown]
  - Underdose [Recovered/Resolved]
